FAERS Safety Report 5392930-1 (Version None)
Quarter: 2007Q3

REPORT INFORMATION
  Report Type: 
  Country: None (occurrence: None)
  Receive Date: 20070718
  Receipt Date: 20070706
  Transmission Date: 20080115
  Serious: Yes (Life-Threatening)
  Sender: FDA-Public Use
  Company Number: GXKR2007JP05867

PATIENT

DRUGS (1)
  1. DICLOFENAC (NGX) (DICLOFENAC( [Suspect]

REACTIONS (7)
  - CHOLESTASIS [None]
  - HEPATIC FIBROSIS [None]
  - HEPATIC NECROSIS [None]
  - HEPATITIS [None]
  - LIVER INJURY [None]
  - LIVER TRANSPLANT [None]
  - VANISHING BILE DUCT SYNDROME [None]
